FAERS Safety Report 4295455-X (Version None)
Quarter: 2004Q1

REPORT INFORMATION
  Report Type: 
  Country: None (occurrence: None)
  Receive Date: 20040216
  Receipt Date: 20040202
  Transmission Date: 20041129
  Serious: Yes (Life-Threatening)
  Sender: FDA-Public Use
  Company Number: FR-ROCHE-357857

PATIENT
  Age: 40 Year
  Sex: Female

DRUGS (10)
  1. CYMEVAN IV [Suspect]
     Indication: DRUG USE FOR UNKNOWN INDICATION
     Route: 042
     Dates: start: 20031114
  2. NEORAL [Suspect]
     Indication: DRUG USE FOR UNKNOWN INDICATION
     Route: 065
     Dates: start: 20030922, end: 20031104
  3. PROGRAF [Suspect]
     Indication: DRUG USE FOR UNKNOWN INDICATION
     Route: 048
     Dates: start: 20031105, end: 20031119
  4. VANCOMYCIN [Concomitant]
     Indication: DRUG USE FOR UNKNOWN INDICATION
     Route: 065
  5. TIENAM [Concomitant]
     Indication: DRUG USE FOR UNKNOWN INDICATION
     Route: 065
  6. AZACTAM [Concomitant]
     Route: 065
     Dates: start: 20031009
  7. CANCIDAS [Concomitant]
     Route: 065
     Dates: start: 20031009
  8. CIFLOX [Concomitant]
     Dates: start: 20031009
  9. VFEND [Concomitant]
     Dates: start: 20031009
  10. CORTANCYL [Concomitant]
     Indication: GRAFT VERSUS HOST DISEASE

REACTIONS (10)
  - CONVULSION [None]
  - CYTOMEGALOVIRUS TEST POSITIVE [None]
  - GRAFT VERSUS HOST DISEASE [None]
  - HAEMOLYTIC ANAEMIA [None]
  - HAEMOLYTIC URAEMIC SYNDROME [None]
  - PYREXIA [None]
  - RED BLOOD CELL SCHISTOCYTES PRESENT [None]
  - SERRATIA INFECTION [None]
  - THROMBOCYTOPENIA [None]
  - THROMBOTIC MICROANGIOPATHY [None]
